FAERS Safety Report 7197123-3 (Version None)
Quarter: 2010Q4

REPORT INFORMATION
  Report Type: 
  Country: None (occurrence: None)
  Receive Date: 20101224
  Receipt Date: 20101211
  Transmission Date: 20110411
  Serious: Yes (Other)
  Sender: FDA-Public Use
  Company Number: PHEH2009US17867

PATIENT
  Sex: Female

DRUGS (3)
  1. EXJADE [Suspect]
     Indication: SERUM FERRITIN INCREASED
     Dosage: 750 MG, QD
     Route: 048
  2. EXJADE [Suspect]
     Dosage: UNK
     Route: 048
  3. EXJADE [Suspect]
     Dosage: 3 TABLETS PER DAY

REACTIONS (6)
  - DIARRHOEA [None]
  - HEARING IMPAIRED [None]
  - NAUSEA [None]
  - RASH [None]
  - SURGERY [None]
  - VISION BLURRED [None]
